FAERS Safety Report 23293732 (Version 1)
Quarter: 2023Q4

REPORT INFORMATION
  Report Type: Report from Study
  Country: FR (occurrence: FR)
  Receive Date: 20231213
  Receipt Date: 20231213
  Transmission Date: 20240110
  Serious: Yes (Other)
  Sender: FDA-Public Use
  Company Number: FR-TAKEDA-2023TUS118333

PATIENT
  Age: 75 Year
  Sex: Female

DRUGS (8)
  1. TEDUGLUTIDE [Suspect]
     Active Substance: TEDUGLUTIDE
     Indication: Short-bowel syndrome
     Dosage: 2.300 MILLIGRAM, QD
     Route: 042
     Dates: start: 20200622, end: 20220501
  2. TEDUGLUTIDE [Suspect]
     Active Substance: TEDUGLUTIDE
     Indication: Short-bowel syndrome
     Dosage: 2.300 MILLIGRAM, QD
     Route: 042
     Dates: start: 20200622, end: 20220501
  3. TEDUGLUTIDE [Suspect]
     Active Substance: TEDUGLUTIDE
     Indication: Short-bowel syndrome
     Dosage: 2.300 MILLIGRAM, QD
     Route: 042
     Dates: start: 20200622, end: 20220501
  4. TEDUGLUTIDE [Suspect]
     Active Substance: TEDUGLUTIDE
     Indication: Short-bowel syndrome
     Dosage: 2.300 MILLIGRAM, QD
     Route: 042
     Dates: start: 20200622, end: 20220501
  5. MUPIROCIN [Concomitant]
     Active Substance: MUPIROCIN
     Indication: Fungal skin infection
     Dosage: 1 DOSAGE FORM
     Route: 061
     Dates: start: 202311, end: 2023
  6. VITAMIN C [Concomitant]
     Active Substance: ASCORBIC ACID
     Indication: Vitamin C deficiency
     Dosage: UNK UNK, 3/WEEK
     Route: 048
     Dates: start: 20220404
  7. ALUMINUM HYDROXIDE\ALUMINUM PHOSPHATE\GUAR GUM\MAGNESIUM HYDROXIDE [Concomitant]
     Active Substance: ALUMINUM HYDROXIDE\ALUMINUM PHOSPHATE\GUAR GUM\MAGNESIUM HYDROXIDE
     Indication: Hyperchlorhydria
     Dosage: UNK UNK, TID
     Route: 048
     Dates: start: 20220404
  8. DOMPERIDONE [Concomitant]
     Active Substance: DOMPERIDONE
     Dosage: 10.00 MILLIGRAM
     Route: 048
     Dates: start: 20220404

REACTIONS (4)
  - Hypothermia [Recovered/Resolved]
  - Muscle spasms [Not Recovered/Not Resolved]
  - Fungal skin infection [Recovered/Resolved]
  - Osteopenia [Not Recovered/Not Resolved]

NARRATIVE: CASE EVENT DATE: 20230103
